FAERS Safety Report 5399094-9 (Version None)
Quarter: 2007Q3

REPORT INFORMATION
  Report Type: 
  Country: None (occurrence: None)
  Receive Date: 20070727
  Receipt Date: 20061127
  Transmission Date: 20080115
  Serious: No
  Sender: FDA-Public Use
  Company Number: A0628697A

PATIENT
  Age: 61 Year
  Sex: Male

DRUGS (7)
  1. LOTRONEX [Suspect]
     Indication: IRRITABLE BOWEL SYNDROME
     Dosage: .5MG TWICE PER DAY
     Route: 048
     Dates: start: 20061009
  2. PROGRAF [Concomitant]
  3. MYFORTIC [Concomitant]
  4. LYRICA [Concomitant]
  5. LIPITOR [Concomitant]
  6. NEXIUM [Concomitant]
  7. NADOLOL [Concomitant]

REACTIONS (2)
  - DRUG LEVEL INCREASED [None]
  - THERAPEUTIC RESPONSE DECREASED [None]
